FAERS Safety Report 24148955 (Version 1)
Quarter: 2024Q3

REPORT INFORMATION
  Report Type: Spontaneous
  Country: CN (occurrence: CN)
  Receive Date: 20240729
  Receipt Date: 20240729
  Transmission Date: 20241016
  Serious: Yes (Hospitalization)
  Sender: GE HEALTHCARE
  Company Number: CN-GE HEALTHCARE-2024CSU008322

PATIENT
  Age: 71 Year
  Sex: Male

DRUGS (1)
  1. OMNIPAQUE [Suspect]
     Active Substance: IOHEXOL
     Indication: Computerised tomogram abdomen
     Dosage: 35 ML, TOTAL
     Route: 042
     Dates: start: 20240708, end: 20240708

REACTIONS (7)
  - Anal erosion [Recovering/Resolving]
  - Skin erosion [Recovering/Resolving]
  - Anal inflammation [Recovering/Resolving]
  - Anal erythema [Recovering/Resolving]
  - Perineal erythema [Recovering/Resolving]
  - Pruritus [Recovering/Resolving]
  - Dermatitis allergic [Recovering/Resolving]

NARRATIVE: CASE EVENT DATE: 20240708
